FAERS Safety Report 8282480-7 (Version None)
Quarter: 2012Q2

REPORT INFORMATION
  Report Type: 
  Country: None (occurrence: None)
  Receive Date: 20120413
  Receipt Date: 20120403
  Transmission Date: 20120825
  Serious: Yes (Hospitalization)
  Sender: FDA-Public Use
  Company Number: BR-SANOFI-AVENTIS-2012SA011999

PATIENT
  Sex: Male
  Weight: 55 kg

DRUGS (6)
  1. CEBION-CALCIUM MED D3-VITAMIN [Concomitant]
     Dates: start: 20040101
  2. DRAMIN B-6 [Concomitant]
     Indication: TINNITUS
  3. MULTI-VITAMINS [Concomitant]
     Indication: PROPHYLAXIS
     Dates: start: 20040101
  4. DRAMIN B-6 [Concomitant]
     Indication: DIZZINESS
  5. BUCLINA [Concomitant]
     Dates: start: 20040101
  6. AMARYL [Suspect]
     Route: 065
     Dates: start: 20070101

REACTIONS (13)
  - BACK PAIN [None]
  - NAUSEA [None]
  - DIZZINESS [None]
  - BLOOD GLUCOSE INCREASED [None]
  - GASTRITIS [None]
  - FALL [None]
  - CONSTIPATION [None]
  - WEIGHT DECREASED [None]
  - TINNITUS [None]
  - BACTERIAL INFECTION [None]
  - HAEMORRHAGE [None]
  - VOMITING [None]
  - EATING DISORDER [None]
